FAERS Safety Report 4878040-8 (Version None)
Quarter: 2005Q4

REPORT INFORMATION
  Report Type: 
  Country: None (occurrence: None)
  Receive Date: 20051206
  Receipt Date: 20050829
  Transmission Date: 20060501
  Serious: No
  Sender: FDA-Public Use
  Company Number: USA0508106762

PATIENT
  Age: 60 Year
  Sex: Female

DRUGS (1)
  1. CYMBALTA [Suspect]
     Indication: FIBROMYALGIA
     Dosage: 60 MG
     Dates: start: 20050701, end: 20050801

REACTIONS (6)
  - FEELING ABNORMAL [None]
  - HOT FLUSH [None]
  - NAUSEA [None]
  - PAIN [None]
  - PARAESTHESIA [None]
  - TINNITUS [None]
